FAERS Safety Report 11673491 (Version 1)
Quarter: 2015Q4

REPORT INFORMATION
  Report Type: Spontaneous
  Country: US (occurrence: None)
  Receive Date: 20151027
  Receipt Date: 20151027
  Transmission Date: 20160304
  Serious: No
  Sender: FDA-Public Use
  Company Number: None

PATIENT
  Age: 35 Year
  Sex: Female
  Weight: 72.58 kg

DRUGS (5)
  1. LEVAQUIN [Suspect]
     Active Substance: LEVOFLOXACIN
     Indication: PNEUMONIA
     Dosage: 1 PILL
     Route: 048
  2. SPRINTEC [Concomitant]
     Active Substance: ETHINYL ESTRADIOL\NORGESTIMATE
  3. LYRICA [Concomitant]
     Active Substance: PREGABALIN
  4. XANAX [Concomitant]
     Active Substance: ALPRAZOLAM
  5. BUSPARINE [Concomitant]

REACTIONS (5)
  - Arthralgia [None]
  - Dysstasia [None]
  - Gait disturbance [None]
  - Pain [None]
  - Mobility decreased [None]

NARRATIVE: CASE EVENT DATE: 20151023
